FAERS Safety Report 18971030 (Version 1)
Quarter: 2021Q1

REPORT INFORMATION
  Report Type: Spontaneous
  Country: CN (occurrence: CN)
  Receive Date: 20210304
  Receipt Date: 20210304
  Transmission Date: 20210420
  Serious: Yes (Other)
  Sender: FDA-Public Use
  Company Number: CN-009507513-2103CHN000034

PATIENT
  Age: 61 Year
  Sex: Female

DRUGS (3)
  1. PIPERACILLIN SODIUM (+) SULBACTAM SODIUM [Concomitant]
     Active Substance: PIPERACILLIN SODIUM\SULBACTAM SODIUM
     Indication: PNEUMONIA KLEBSIELLA
     Dosage: 2.5 GRAM, Q8H
     Route: 041
     Dates: start: 20181206, end: 20181210
  2. LINEZOLID. [Concomitant]
     Active Substance: LINEZOLID
     Indication: PNEUMONIA KLEBSIELLA
     Dosage: 0.6 GRAM, Q12H
     Route: 041
     Dates: start: 20181206, end: 20181210
  3. IMIPENEM AND CILASTATIN [Suspect]
     Active Substance: CILASTATIN SODIUM\IMIPENEM
     Indication: PNEUMONIA KLEBSIELLA
     Dosage: 1 GRAM, Q8H
     Route: 041
     Dates: start: 20181210, end: 20181217

REACTIONS (2)
  - Epilepsy [Unknown]
  - Pathogen resistance [Unknown]

NARRATIVE: CASE EVENT DATE: 20181216
